FAERS Safety Report 10460550 (Version 3)
Quarter: 2014Q4

REPORT INFORMATION
  Report Type: Report from Study
  Country: AU (occurrence: AU)
  Receive Date: 20140918
  Receipt Date: 20141021
  Transmission Date: 20150528
  Serious: Yes (Hospitalization)
  Sender: FDA-Public Use
  Company Number: AU-ROCHE-1455649

PATIENT
  Age: 89 Year
  Sex: Female

DRUGS (8)
  1. BICOR (AUSTRALIA) [Concomitant]
  2. OSTELIN VITAMIN D + CALCIUM TABLETS [Concomitant]
  3. PANADOL [Concomitant]
     Active Substance: ACETAMINOPHEN
  4. RANIBIZUMAB [Suspect]
     Active Substance: RANIBIZUMAB
     Route: 050
     Dates: start: 20140724
  5. RANIBIZUMAB [Suspect]
     Active Substance: RANIBIZUMAB
     Route: 050
     Dates: start: 20140523, end: 20140523
  6. RANIBIZUMAB [Suspect]
     Active Substance: RANIBIZUMAB
     Indication: AGE-RELATED MACULAR DEGENERATION
     Route: 050
     Dates: start: 20071130
  7. AVAPRO [Concomitant]
     Active Substance: IRBESARTAN
  8. CARTIA (AUSTRALIA) [Concomitant]

REACTIONS (13)
  - Back pain [Recovering/Resolving]
  - Nausea [Recovered/Resolved]
  - Oxygen saturation decreased [Recovered/Resolved]
  - Electrocardiogram QT prolonged [Unknown]
  - Mobility decreased [Recovered/Resolved]
  - Umbilical hernia [Unknown]
  - Urine ketone body present [Unknown]
  - Atelectasis [Unknown]
  - Lung disorder [Unknown]
  - Inguinal hernia [Unknown]
  - Constipation [Unknown]
  - Acquired diaphragmatic eventration [Unknown]
  - Diaphragmatic hernia [Unknown]

NARRATIVE: CASE EVENT DATE: 20140606
